FAERS Safety Report 12091439 (Version 1)
Quarter: 2016Q1

REPORT INFORMATION
  Report Type: Report from Study
  Country: US (occurrence: US)
  Receive Date: 20160218
  Receipt Date: 20160218
  Transmission Date: 20160526
  Serious: Yes (Other)
  Sender: FDA-Public Use
  Company Number: US-B.I. PHARMACEUTICALS,INC./RIDGEFIELD-2016-BI-09357BI

PATIENT

DRUGS (2)
  1. PERSANTIN [Suspect]
     Active Substance: DIPYRIDAMOLE
     Indication: ANTIPLATELET THERAPY
     Dosage: 75 MG
     Route: 065
     Dates: start: 200606, end: 200908
  2. ASA [Concomitant]
     Active Substance: ASPIRIN
     Indication: ANTIPLATELET THERAPY
     Dosage: 81 MG
     Route: 065
     Dates: start: 200606

REACTIONS (2)
  - Arteriovenous malformation [Unknown]
  - Gastrointestinal haemorrhage [Unknown]
